FAERS Safety Report 19560769 (Version 2)
Quarter: 2021Q3

REPORT INFORMATION
  Report Type: Spontaneous
  Country: US (occurrence: US)
  Receive Date: 20210715
  Receipt Date: 20210727
  Transmission Date: 20211014
  Serious: Yes (Other)
  Sender: FDA-Public Use
  Company Number: US-GW PHARMA-202107USGW03371

PATIENT

DRUGS (1)
  1. EPIDIOLEX [Suspect]
     Active Substance: CANNABIDIOL
     Indication: LENNOX-GASTAUT SYNDROME
     Dosage: 18.68 MG/KG/DAY, 500 MILLIGRAM, BID (FIRST SHIPPED ON 26 NOV 2018)
     Route: 048
     Dates: start: 2018

REACTIONS (2)
  - Seizure [Not Recovered/Not Resolved]
  - Drug ineffective [Unknown]
